FAERS Safety Report 9748678 (Version 2)
Quarter: 2014Q1

REPORT INFORMATION
  Report Type: Spontaneous
  Country: BE (occurrence: None)
  Receive Date: 20131209
  Receipt Date: 20140205
  Transmission Date: 20141002
  Serious: Yes (Hospitalization, Other)
  Sender: FDA-Public Use
  Company Number: ADR-2013-02234

PATIENT
  Sex: 0

DRUGS (1)
  1. LIORESAL [Suspect]
     Indication: MUSCLE SPASTICITY
     Dosage: UNK

REACTIONS (4)
  - Overdose [None]
  - Respiratory distress [None]
  - Thermal burn [None]
  - Muscle spasticity [None]
